FAERS Safety Report 10414689 (Version 1)
Quarter: 2014Q3

REPORT INFORMATION
  Report Type: Spontaneous
  Country: US (occurrence: None)
  Receive Date: 20140827
  Receipt Date: 20140827
  Transmission Date: 20150326
  Serious: Yes (Hospitalization)
  Sender: FDA-Public Use
  Company Number: None

PATIENT
  Age: 16 Year
  Sex: Male
  Weight: 57.5 kg

DRUGS (5)
  1. NORMAL SALINE FLUSH [Concomitant]
     Active Substance: SODIUM CHLORIDE
  2. HEPARIN FLUSH [Concomitant]
  3. GAMMAGARD LIQUID [Suspect]
     Active Substance: HUMAN IMMUNOGLOBULIN G
     Indication: IMMUNODEFICIENCY COMMON VARIABLE
     Dosage: 20 GM Q4 WEEKS IV
     Route: 042
     Dates: start: 20140803
  4. APAP [Concomitant]
     Active Substance: ACETAMINOPHEN
  5. DIPHENHYDRAMINE [Concomitant]
     Active Substance: DIPHENHYDRAMINE

REACTIONS (1)
  - Convulsion [None]

NARRATIVE: CASE EVENT DATE: 20140805
